FAERS Safety Report 23890692 (Version 2)
Quarter: 2024Q2

REPORT INFORMATION
  Report Type: Spontaneous
  Country: DZ (occurrence: DZ)
  Receive Date: 20240523
  Receipt Date: 20240603
  Transmission Date: 20240717
  Serious: Yes (Life-Threatening, Other)
  Sender: FDA-Public Use
  Company Number: DZ-MYLANLABS-2024M1047167

PATIENT
  Age: 37 Year
  Sex: Female

DRUGS (4)
  1. CARBOPLATIN [Suspect]
     Active Substance: CARBOPLATIN
     Indication: Breast cancer
     Dosage: UNK
     Route: 065
     Dates: start: 20231127
  2. BEVACIZUMAB [Concomitant]
     Active Substance: BEVACIZUMAB
     Dosage: UNK
     Route: 065
     Dates: start: 20231127
  3. GEMCITABINE [Concomitant]
     Active Substance: GEMCITABINE
     Dosage: UNK
     Route: 065
     Dates: start: 20231127
  4. DENOSUMAB [Concomitant]
     Active Substance: DENOSUMAB
     Dosage: UNK
     Route: 065
     Dates: start: 20231127

REACTIONS (4)
  - Cardiac arrest [Recovered/Resolved]
  - Mydriasis [Recovered/Resolved]
  - Shock [Recovered/Resolved]
  - Dyspnoea [Recovered/Resolved]

NARRATIVE: CASE EVENT DATE: 20231127
